FAERS Safety Report 23650146 (Version 1)
Quarter: 2024Q1

REPORT INFORMATION
  Report Type: Spontaneous
  Country: UY (occurrence: UY)
  Receive Date: 20240319
  Receipt Date: 20240319
  Transmission Date: 20240410
  Serious: Yes (Death, Other)
  Sender: FDA-Public Use
  Company Number: UY-009507513-2403URY004696

PATIENT
  Sex: Female

DRUGS (2)
  1. KEYTRUDA [Suspect]
     Active Substance: PEMBROLIZUMAB
     Indication: Renal cancer
     Dosage: UNK
     Route: 042
     Dates: start: 20231229, end: 20240121
  2. AXITINIB [Suspect]
     Active Substance: AXITINIB
     Indication: Renal cancer
     Dosage: UNK
     Dates: start: 20231229

REACTIONS (4)
  - Hepatic failure [Fatal]
  - Malignant neoplasm progression [Unknown]
  - Azotaemia [Unknown]
  - Hypercreatininaemia [Unknown]
